FAERS Safety Report 9270421 (Version 2)
Quarter: 2013Q2

REPORT INFORMATION
  Report Type: Spontaneous
  Country: US (occurrence: US)
  Receive Date: 20130503
  Receipt Date: 20130624
  Transmission Date: 20140414
  Serious: No
  Sender: FDA-Public Use
  Company Number: US-009507513-1305USA001622

PATIENT
  Age: 2 Month
  Sex: Male
  Weight: 1.68 kg

DRUGS (5)
  1. CLARITIN ORAL SOLUTION [Suspect]
     Indication: HYPERSENSITIVITY
     Dosage: 5 MG, QD
     Route: 048
     Dates: start: 20130412, end: 20130415
  2. CLARITIN ORAL SOLUTION [Suspect]
     Indication: SNEEZING
  3. CLARITIN ORAL SOLUTION [Suspect]
     Indication: EYE PRURITUS
  4. CLARITIN ORAL SOLUTION [Suspect]
     Indication: LACRIMATION INCREASED
  5. CLARITIN ORAL SOLUTION [Suspect]
     Indication: MEDICAL OBSERVATION

REACTIONS (6)
  - Insomnia [Unknown]
  - Eye disorder [Unknown]
  - Sneezing [Unknown]
  - Drug ineffective [Unknown]
  - Drug administered to patient of inappropriate age [Unknown]
  - Off label use [Unknown]
